FAERS Safety Report 19018632 (Version 6)
Quarter: 2022Q2

REPORT INFORMATION
  Report Type: Report from Study
  Country: US (occurrence: US)
  Receive Date: 20210317
  Receipt Date: 20220407
  Transmission Date: 20220721
  Serious: Yes (Other)
  Sender: FDA-Public Use
  Company Number: NVSC2021US054919

PATIENT
  Sex: Male

DRUGS (1)
  1. ENTRESTO [Suspect]
     Active Substance: SACUBITRIL\VALSARTAN
     Indication: Product used for unknown indication
     Dosage: UNK UNK, BID
     Route: 048
     Dates: start: 202012

REACTIONS (8)
  - Type 2 diabetes mellitus [Unknown]
  - Peripheral vascular disorder [Unknown]
  - Blister infected [Unknown]
  - Peripheral swelling [Unknown]
  - Cough [Unknown]
  - Sinus congestion [Unknown]
  - Nasal congestion [Unknown]
  - Drug ineffective [Unknown]
